FAERS Safety Report 7759472-7 (Version None)
Quarter: 2011Q3

REPORT INFORMATION
  Report Type: 
  Country: None (occurrence: None)
  Receive Date: 20110919
  Receipt Date: 20110919
  Transmission Date: 20111222
  Serious: Yes (Death)
  Sender: FDA-Public Use
  Company Number: None

PATIENT
  Age: 19 Year
  Sex: Female
  Weight: 42 kg

DRUGS (2)
  1. VALCYTE [Concomitant]
     Dosage: 450MG
     Route: 048
     Dates: start: 20110615, end: 20110725
  2. VALCYTE [Suspect]
     Indication: CYTOMEGALOVIRUS INFECTION
     Dosage: 900MG
     Route: 048
     Dates: start: 20110531, end: 20110615

REACTIONS (2)
  - NEUTROPENIA [None]
  - SEPTIC SHOCK [None]
